FAERS Safety Report 25476753 (Version 1)
Quarter: 2025Q2

REPORT INFORMATION
  Report Type: Report from Study
  Country: US (occurrence: US)
  Receive Date: 20250625
  Receipt Date: 20250625
  Transmission Date: 20250716
  Serious: Yes (Other)
  Sender: GILEAD
  Company Number: US-GILEAD-2025-0715393

PATIENT
  Age: 79 Year
  Sex: Male
  Weight: 112.9 kg

DRUGS (36)
  1. AMBRISENTAN [Suspect]
     Active Substance: AMBRISENTAN
     Indication: Pulmonary hypertension
     Dosage: 10 MG, QD
     Route: 048
     Dates: start: 20220429
  2. AMBRISENTAN [Suspect]
     Active Substance: AMBRISENTAN
     Route: 065
  3. UPTRAVI [Suspect]
     Active Substance: SELEXIPAG
     Indication: Product used for unknown indication
     Route: 065
  4. TYVASO [Suspect]
     Active Substance: TREPROSTINIL
     Indication: Pulmonary arterial hypertension
     Dosage: 64 UG, QID
     Route: 055
  5. TYVASO [Suspect]
     Active Substance: TREPROSTINIL
     Route: 055
  6. AMLODIPINE BESYLATE [Concomitant]
     Active Substance: AMLODIPINE BESYLATE
  7. FAMOTIDINE [Concomitant]
     Active Substance: FAMOTIDINE
  8. TUMS [Concomitant]
     Active Substance: CALCIUM CARBONATE
  9. VITAMIN B12 [Concomitant]
     Active Substance: CYANOCOBALAMIN
  10. PEPTO-BISMOL [Concomitant]
     Active Substance: BISMUTH SUBSALICYLATE
  11. XARELTO [Concomitant]
     Active Substance: RIVAROXABAN
  12. TYLENOL [Concomitant]
     Active Substance: ACETAMINOPHEN
  13. LIPITOR [Concomitant]
     Active Substance: ATORVASTATIN CALCIUM
  14. TAMSULOSIN HYDROCHLORIDE [Concomitant]
     Active Substance: TAMSULOSIN HYDROCHLORIDE
  15. POTASSIUM CHLORIDE [Concomitant]
     Active Substance: POTASSIUM CHLORIDE
  16. GUAIFENESIN AND DEXTROMETHORPHAN [Concomitant]
     Active Substance: DEXTROMETHORPHAN\GUAIFENESIN
  17. ATENOLOL [Concomitant]
     Active Substance: ATENOLOL
  18. CALTRATE [Concomitant]
     Active Substance: CALCIUM CARBONATE
  19. FLUTICASONE FUROATE\SALMETEROL XINAFOATE [Concomitant]
     Active Substance: FLUTICASONE FUROATE\SALMETEROL XINAFOATE
  20. ALBUTEROL SULFATE [Concomitant]
     Active Substance: ALBUTEROL SULFATE
  21. VITAMIN D3 [Concomitant]
     Active Substance: CHOLECALCIFEROL
  22. ADALAT CC [Concomitant]
     Active Substance: NIFEDIPINE
  23. FLUTICASONE PROPIONATE [Concomitant]
     Active Substance: FLUTICASONE PROPIONATE
  24. MUCINEX [Concomitant]
     Active Substance: GUAIFENESIN
  25. FLUCELVAX QUADRIVALENT NOS [Concomitant]
     Active Substance: INFLUENZA A VIRUS A/BRISBANE/10/2010 (H1N1) ANTIGEN (MDCK CELL DERIVED, PROPIOLACTONE INACTIVATED)\I
  26. PREDNISONE [Concomitant]
     Active Substance: PREDNISONE
  27. PROMETHAZINE HYDROCHLORIDE [Concomitant]
     Active Substance: PROMETHAZINE HYDROCHLORIDE
  28. OXYGEN [Concomitant]
     Active Substance: OXYGEN
  29. ADCIRCA [Concomitant]
     Active Substance: TADALAFIL
  30. PROSCAR [Concomitant]
     Active Substance: FINASTERIDE
  31. ASPIRIN [Concomitant]
     Active Substance: ASPIRIN
  32. LISINOPRIL [Concomitant]
     Active Substance: LISINOPRIL
  33. LORATADINE [Concomitant]
     Active Substance: LORATADINE
  34. ALYQ [Concomitant]
     Active Substance: TADALAFIL
  35. FERROUS SULFATE [Concomitant]
     Active Substance: FERROUS SULFATE
  36. ARFORMOTEROL TARTRATE [Concomitant]
     Active Substance: ARFORMOTEROL TARTRATE

REACTIONS (6)
  - Pulmonary oedema [Unknown]
  - Blood pressure increased [Recovering/Resolving]
  - Blood pressure abnormal [Unknown]
  - Peripheral swelling [Unknown]
  - Dyspnoea [Unknown]
  - Product dose omission issue [Recovered/Resolved]
